FAERS Safety Report 4325299-1 (Version None)
Quarter: 2004Q1

REPORT INFORMATION
  Report Type: 
  Country: None (occurrence: None)
  Receive Date: 20040326
  Receipt Date: 20040326
  Transmission Date: 20041129
  Serious: Yes (Hospitalization)
  Sender: FDA-Public Use
  Company Number: None

PATIENT
  Age: 47 Year
  Sex: Female
  Weight: 79.3795 kg

DRUGS (3)
  1. TAXOTERE [Suspect]
     Indication: BREAST CANCER
     Dosage: 138 MG Q3WEEKS IV
     Route: 042
     Dates: start: 20040217, end: 20040217
  2. DOXORUBICIN/CYCLOPHOSPHAMIDE [Concomitant]
  3. TAXOL [Concomitant]

REACTIONS (3)
  - DERMATITIS EXFOLIATIVE [None]
  - RECALL PHENOMENON [None]
  - SKIN DESQUAMATION [None]
